FAERS Safety Report 7106796-2 (Version None)
Quarter: 2010Q4

REPORT INFORMATION
  Report Type: 
  Country: None (occurrence: None)
  Receive Date: 20101116
  Receipt Date: 20101026
  Transmission Date: 20110411
  Serious: No
  Sender: FDA-Public Use
  Company Number: US-ABBOTT-10P-163-0681432-00

PATIENT
  Sex: Male
  Weight: 68.1 kg

DRUGS (2)
  1. SIMCOR [Suspect]
     Indication: BLOOD CHOLESTEROL INCREASED
     Route: 048
     Dates: start: 20101023
  2. FLOMAX [Concomitant]
     Indication: PROSTATOMEGALY

REACTIONS (2)
  - ERYTHEMA [None]
  - FEELING HOT [None]
